FAERS Safety Report 20882893 (Version 1)
Quarter: 2022Q2

REPORT INFORMATION
  Report Type: Report from Study
  Country: DE (occurrence: DE)
  Receive Date: 20220527
  Receipt Date: 20220527
  Transmission Date: 20220721
  Serious: Yes (Other)
  Sender: FDA-Public Use
  Company Number: DE-IPSEN Group Research and Development-2017-16047

PATIENT
  Age: 71 Year
  Sex: Male
  Weight: 87 kg

DRUGS (53)
  1. OXALIPLATIN [Suspect]
     Active Substance: OXALIPLATIN
     Indication: Product used for unknown indication
     Dosage: UNK
     Dates: start: 20160919, end: 20160919
  2. SIMVASTATIN [Suspect]
     Active Substance: SIMVASTATIN
     Indication: Product used for unknown indication
     Dosage: 420 MG, QW
     Route: 042
     Dates: start: 20160224
  3. SIMVASTATIN [Suspect]
     Active Substance: SIMVASTATIN
     Dosage: 420 MG, BIWEEKLY
     Route: 042
     Dates: start: 20160615, end: 20160615
  4. SIMVASTATIN [Suspect]
     Active Substance: SIMVASTATIN
     Dosage: 840 MILLIGRAM
     Route: 042
     Dates: start: 20160224
  5. ONIVYDE [Suspect]
     Active Substance: IRINOTECAN HYDROCHLORIDE
     Indication: Colorectal cancer
     Dosage: 272 MG, Q2W
     Route: 042
     Dates: start: 20160208, end: 20160208
  6. ONIVYDE [Suspect]
     Active Substance: IRINOTECAN HYDROCHLORIDE
     Dosage: 363 MG, Q2W
     Route: 042
     Dates: start: 20160222, end: 20160222
  7. ONIVYDE [Suspect]
     Active Substance: IRINOTECAN HYDROCHLORIDE
     Dosage: 272 MG, BIWEEKLY
     Route: 042
     Dates: start: 20160314, end: 20160314
  8. ONIVYDE [Suspect]
     Active Substance: IRINOTECAN HYDROCHLORIDE
     Dosage: 272 MG, Q2W
     Route: 042
     Dates: start: 20160330, end: 20160330
  9. ONIVYDE [Suspect]
     Active Substance: IRINOTECAN HYDROCHLORIDE
     Dosage: 270 MG, BIWEEKLY
     Route: 042
     Dates: start: 20160411, end: 20160411
  10. ONIVYDE [Suspect]
     Active Substance: IRINOTECAN HYDROCHLORIDE
     Dosage: 270 MILLIGRAM, QW
     Route: 042
     Dates: start: 20160425, end: 20160425
  11. ONIVYDE [Suspect]
     Active Substance: IRINOTECAN HYDROCHLORIDE
     Dosage: 272 MG,BIWEEKLY , (2X A WEEK)
     Route: 042
     Dates: start: 20160613, end: 20160613
  12. ONIVYDE [Suspect]
     Active Substance: IRINOTECAN HYDROCHLORIDE
     Dosage: 272 MG, BIWEEKLY
     Route: 042
     Dates: start: 20160627, end: 20160627
  13. ONIVYDE [Suspect]
     Active Substance: IRINOTECAN HYDROCHLORIDE
     Dosage: 275 MG, BIWEEKLY
     Route: 042
     Dates: start: 20160711
  14. ONIVYDE [Suspect]
     Active Substance: IRINOTECAN HYDROCHLORIDE
     Dosage: 275 MG, UNK
     Route: 042
  15. ONIVYDE [Suspect]
     Active Substance: IRINOTECAN HYDROCHLORIDE
     Dosage: 270 MG, UNK
     Route: 042
  16. ONIVYDE [Suspect]
     Active Substance: IRINOTECAN HYDROCHLORIDE
     Dosage: 272 MG, UNK
     Route: 042
  17. ONIVYDE [Suspect]
     Active Substance: IRINOTECAN HYDROCHLORIDE
     Dosage: 272 MG, QW
     Route: 042
     Dates: start: 20160208
  18. ONIVYDE [Suspect]
     Active Substance: IRINOTECAN HYDROCHLORIDE
     Dosage: 363 MILLIGRAM, QW
     Route: 042
     Dates: start: 20160222, end: 20160222
  19. ONIVYDE [Suspect]
     Active Substance: IRINOTECAN HYDROCHLORIDE
     Dosage: 272 MILLIGRAM, QW
     Route: 042
     Dates: start: 20160330, end: 20160330
  20. FLUOROURACIL [Suspect]
     Active Substance: FLUOROURACIL
     Indication: Colorectal cancer
     Dosage: 1 DF, QW (1 DF, 1X/WEEK , DOSAGE BETWEEN 600 MG AND 800 MG)
     Route: 040
     Dates: start: 20160208, end: 20160208
  21. FLUOROURACIL [Suspect]
     Active Substance: FLUOROURACIL
     Dosage: 808 MG, UNK
     Route: 041
     Dates: start: 20160222, end: 20160222
  22. FLUOROURACIL [Suspect]
     Active Substance: FLUOROURACIL
     Dosage: 363 MG, BIWEEKLY
     Route: 042
     Dates: start: 20160222
  23. FLUOROURACIL [Suspect]
     Active Substance: FLUOROURACIL
     Dosage: 606 MG, Q2W
     Route: 041
     Dates: start: 20160314, end: 20160314
  24. FLUOROURACIL [Suspect]
     Active Substance: FLUOROURACIL
     Dosage: 606 MG, BIWEEKLY
     Route: 040
     Dates: start: 20160314
  25. FLUOROURACIL [Suspect]
     Active Substance: FLUOROURACIL
     Dosage: 606 MG, QW
     Route: 040
     Dates: start: 20160330, end: 20160330
  26. FLUOROURACIL [Suspect]
     Active Substance: FLUOROURACIL
     Dosage: 600 MG, Q2W
     Route: 041
     Dates: start: 20160411, end: 20160411
  27. FLUOROURACIL [Suspect]
     Active Substance: FLUOROURACIL
     Dosage: 600 MG, QW
     Route: 040
     Dates: start: 20160411, end: 20160411
  28. FLUOROURACIL [Suspect]
     Active Substance: FLUOROURACIL
     Dosage: 600 MG, BIWEEKLY
     Route: 040
     Dates: start: 20160425, end: 20160425
  29. FLUOROURACIL [Suspect]
     Active Substance: FLUOROURACIL
     Dosage: 606 MG, BIWEEKLY
     Route: 041
     Dates: start: 20160430, end: 20160430
  30. FLUOROURACIL [Suspect]
     Active Substance: FLUOROURACIL
     Dosage: 606 MG, BIWEEKLY (2X A WEEK)
     Route: 040
     Dates: start: 20160613
  31. FLUOROURACIL [Suspect]
     Active Substance: FLUOROURACIL
     Dosage: 606 MG, Q2W
     Route: 041
     Dates: start: 20160613, end: 20160613
  32. FLUOROURACIL [Suspect]
     Active Substance: FLUOROURACIL
     Dosage: 606 MG, QW, 2X A WEEK
     Route: 041
     Dates: start: 20160627, end: 20160627
  33. FLUOROURACIL [Suspect]
     Active Substance: FLUOROURACIL
     Dosage: 606 MG, BIWEEKLY
     Route: 040
     Dates: start: 20160627, end: 20160627
  34. FLUOROURACIL [Suspect]
     Active Substance: FLUOROURACIL
     Dosage: 612 MG, QW (2X A WEEK)
     Route: 041
     Dates: start: 20160711, end: 20160711
  35. FLUOROURACIL [Suspect]
     Active Substance: FLUOROURACIL
     Dosage: 612 MG, BIWEEKLY
     Route: 040
     Dates: start: 20160711, end: 20160711
  36. FLUOROURACIL [Suspect]
     Active Substance: FLUOROURACIL
     Dosage: 808 MG, BIWEEKLY
     Route: 040
     Dates: start: 20160222
  37. FLUOROURACIL [Suspect]
     Active Substance: FLUOROURACIL
     Dosage: UNK, 606
     Route: 040
  38. FLUOROURACIL [Suspect]
     Active Substance: FLUOROURACIL
     Dosage: 600 MG, UNK
     Route: 040
  39. FLUOROURACIL [Suspect]
     Active Substance: FLUOROURACIL
     Dosage: 612 MG, UNK
     Route: 040
  40. FLUOROURACIL [Suspect]
     Active Substance: FLUOROURACIL
     Dosage: UNK, BETWEEN 600 MG AND 808 MG
     Route: 040
     Dates: start: 20160208, end: 20160208
  41. LEUCOVORIN [Suspect]
     Active Substance: LEUCOVORIN
     Indication: Colorectal cancer
     Dosage: 600 MG, Q2W
     Route: 042
     Dates: start: 20160208, end: 20160208
  42. LEUCOVORIN [Suspect]
     Active Substance: LEUCOVORIN
     Dosage: 808 MG, Q2W
     Route: 042
     Dates: start: 20160222, end: 20160222
  43. LEUCOVORIN [Suspect]
     Active Substance: LEUCOVORIN
     Dosage: 606 MG, UNK
     Route: 042
     Dates: start: 20160314, end: 20160314
  44. LEUCOVORIN [Suspect]
     Active Substance: LEUCOVORIN
     Dosage: 606 MG, QW
     Route: 042
     Dates: start: 20160330, end: 20160330
  45. LEUCOVORIN [Suspect]
     Active Substance: LEUCOVORIN
     Dosage: 600 MG, Q2W
     Route: 042
     Dates: start: 20160411, end: 20160411
  46. LEUCOVORIN [Suspect]
     Active Substance: LEUCOVORIN
     Dosage: 600 MG, Q2W
     Route: 042
     Dates: start: 20160425, end: 20160425
  47. LEUCOVORIN [Suspect]
     Active Substance: LEUCOVORIN
     Dosage: 606 MG, Q2W
     Route: 042
     Dates: start: 20160627, end: 20160627
  48. LEUCOVORIN [Suspect]
     Active Substance: LEUCOVORIN
     Dosage: 612 MG, Q2W
     Route: 042
     Dates: start: 20160711, end: 20160711
  49. LEUCOVORIN [Suspect]
     Active Substance: LEUCOVORIN
     Dosage: 606 MG, 2X A WEEK
     Route: 042
     Dates: start: 20160613, end: 20160613
  50. LEUCOVORIN [Suspect]
     Active Substance: LEUCOVORIN
     Dosage: UNK
     Dates: start: 20160208, end: 20160711
  51. AVASTIN [Suspect]
     Active Substance: BEVACIZUMAB
     Indication: Colorectal cancer
     Dosage: 420 MILLIGRAM, BIWEEKLY
     Route: 042
     Dates: start: 20160224
  52. AVASTIN [Suspect]
     Active Substance: BEVACIZUMAB
     Dosage: 420 MILLIGRAM, BIWEEKLY
     Route: 042
     Dates: start: 20160615, end: 20160615
  53. VALSARTAN [Concomitant]
     Active Substance: VALSARTAN
     Indication: Hypertension
     Dosage: 80 MILLIGRAM, QD
     Route: 048

REACTIONS (5)
  - Inappropriate schedule of product administration [Unknown]
  - Off label use [Unknown]
  - Epistaxis [Recovered/Resolved]
  - Neutropenia [Recovered/Resolved]
  - Overdose [Unknown]

NARRATIVE: CASE EVENT DATE: 20160307
